FAERS Safety Report 12758057 (Version 3)
Quarter: 2016Q4

REPORT INFORMATION
  Report Type: Spontaneous
  Country: IT (occurrence: IT)
  Receive Date: 20160919
  Receipt Date: 20161111
  Transmission Date: 20170207
  Serious: Yes (Hospitalization, Other)
  Sender: FDA-Public Use
  Company Number: IT-MYLANLABS-2016M1038957

PATIENT

DRUGS (4)
  1. ENALAPRIL [Concomitant]
     Active Substance: ENALAPRIL
     Indication: CARDIAC FAILURE
     Dosage: UNK
     Route: 048
  2. FUROSEMIDE. [Concomitant]
     Active Substance: FUROSEMIDE
     Indication: CARDIAC FAILURE
     Dosage: 125 MG
     Route: 048
  3. LORAZEPAM. [Suspect]
     Active Substance: LORAZEPAM
     Indication: ANXIETY
     Dosage: 05 MG, PRN
  4. LORAZEPAM. [Suspect]
     Active Substance: LORAZEPAM
     Dosage: 3.5 MG, TOTAL
     Route: 048
     Dates: start: 20160825, end: 20160826

REACTIONS (6)
  - Cerebral haemorrhage [Unknown]
  - Sopor [Recovered/Resolved]
  - Medication error [Unknown]
  - Ataxia [Recovered/Resolved]
  - Overdose [Unknown]
  - Ischaemic stroke [Unknown]

NARRATIVE: CASE EVENT DATE: 20160825
